FAERS Safety Report 23198944 (Version 1)
Quarter: 2023Q4

REPORT INFORMATION
  Report Type: Spontaneous
  Country: US (occurrence: US)
  Receive Date: 20231117
  Receipt Date: 20231117
  Transmission Date: 20240110
  Serious: No
  Sender: FDA-Public Use
  Company Number: US-Stemline Therapeutics, Inc.-2023ST003235

PATIENT
  Age: 47 Year
  Sex: Female

DRUGS (6)
  1. ORSERDU [Suspect]
     Active Substance: ELACESTRANT
     Dosage: 345 MG, ONCE A DAY
     Route: 048
  2. CALCIUM [Concomitant]
     Active Substance: CALCIUM
     Indication: Product used for unknown indication
  3. VITAMINS [Concomitant]
     Active Substance: VITAMINS
     Indication: Product used for unknown indication
  4. LUPRON DEPOT [Concomitant]
     Active Substance: LEUPROLIDE ACETATE
     Indication: Product used for unknown indication
  5. XARELTO [Concomitant]
     Active Substance: RIVAROXABAN
     Indication: Product used for unknown indication
  6. XGEVA [Concomitant]
     Active Substance: DENOSUMAB
     Dosage: 120MG/1.7ML

REACTIONS (2)
  - Nausea [Recovered/Resolved]
  - Vomiting [Recovered/Resolved]
